FAERS Safety Report 18047004 (Version 1)
Quarter: 2020Q3

REPORT INFORMATION
  Report Type: Spontaneous
  Country: US (occurrence: US)
  Receive Date: 20200720
  Receipt Date: 20200720
  Transmission Date: 20201103
  Serious: No
  Sender: FDA-Public Use
  Company Number: US-ROCHE-2421849

PATIENT
  Age: 55 Year
  Sex: Female

DRUGS (1)
  1. TECENTRIQ [Suspect]
     Active Substance: ATEZOLIZUMAB
     Indication: TRIPLE NEGATIVE BREAST CANCER
     Dosage: ONGOING : UNKNOWN
     Route: 042

REACTIONS (3)
  - Hypothyroidism [Unknown]
  - Off label use [Unknown]
  - Product use in unapproved indication [Unknown]
